FAERS Safety Report 19074978 (Version 1)
Quarter: 2021Q1

REPORT INFORMATION
  Report Type: Spontaneous
  Country: US (occurrence: US)
  Receive Date: 20210330
  Receipt Date: 20210330
  Transmission Date: 20210420
  Serious: No
  Sender: FDA-Public Use
  Company Number: US-ROCHE-2660824

PATIENT
  Sex: Male

DRUGS (9)
  1. ERIVEDGE [Suspect]
     Active Substance: VISMODEGIB
     Indication: BASAL CELL CARCINOMA
     Route: 048
  2. METOPROLOL TARTRATE. [Concomitant]
     Active Substance: METOPROLOL TARTRATE
  3. VITAMIN D2 [Concomitant]
     Active Substance: ERGOCALCIFEROL
  4. AMLODIPINE BESYLATE. [Concomitant]
     Active Substance: AMLODIPINE BESYLATE
  5. ALLOPURINOL. [Concomitant]
     Active Substance: ALLOPURINOL
  6. ATORVASTATIN CALCIUM. [Concomitant]
     Active Substance: ATORVASTATIN CALCIUM
  7. CALCITRIOL. [Concomitant]
     Active Substance: CALCITRIOL
  8. LOSARTAN POTASSIUM. [Concomitant]
     Active Substance: LOSARTAN POTASSIUM
  9. SEVELAMER HCL [Concomitant]
     Active Substance: SEVELAMER HYDROCHLORIDE

REACTIONS (2)
  - Asthenia [Unknown]
  - Fatigue [Unknown]
